FAERS Safety Report 12653707 (Version 1)
Quarter: 2016Q3

REPORT INFORMATION
  Report Type: Spontaneous
  Country: US (occurrence: US)
  Receive Date: 20160816
  Receipt Date: 20160816
  Transmission Date: 20161109
  Serious: Yes (Hospitalization, Other)
  Sender: FDA-Public Use
  Company Number: US-AMGEN-USASP2016103159

PATIENT
  Sex: Female

DRUGS (2)
  1. CALCITONIN [Concomitant]
     Active Substance: CALCITONIN
     Dosage: UNK
  2. XGEVA [Suspect]
     Active Substance: DENOSUMAB
     Indication: PRODUCT USED FOR UNKNOWN INDICATION
     Dosage: 120 MG, UNK
     Route: 065

REACTIONS (3)
  - Blood calcium abnormal [Unknown]
  - Paraneoplastic syndrome [Unknown]
  - Hospitalisation [Recovered/Resolved]
